FAERS Safety Report 16141629 (Version 1)
Quarter: 2019Q1

REPORT INFORMATION
  Report Type: Spontaneous
  Country: US (occurrence: US)
  Receive Date: 20190331
  Receipt Date: 20190331
  Transmission Date: 20190418
  Serious: Yes (Death)
  Sender: FDA-Public Use
  Company Number: None

PATIENT
  Age: 36 Year
  Sex: Male
  Weight: 125.1 kg

DRUGS (4)
  1. ALPRAZOLAM. [Concomitant]
     Active Substance: ALPRAZOLAM
  2. EFFEXOR [Concomitant]
     Active Substance: VENLAFAXINE HYDROCHLORIDE
  3. KRATOM- TEA [Suspect]
     Active Substance: HERBALS\MITRAGYNINE
     Indication: ANXIETY
  4. KRATOM- TEA [Suspect]
     Active Substance: HERBALS\MITRAGYNINE
     Indication: PAIN

REACTIONS (2)
  - Toxicity to various agents [None]
  - Intentional product misuse [None]

NARRATIVE: CASE EVENT DATE: 20190118
